FAERS Safety Report 8779064 (Version 1)
Quarter: 2012Q4

REPORT INFORMATION
  Report Type: 
  Country: US (occurrence: US)
  Receive Date: 20120912
  Receipt Date: 20120912
  Transmission Date: 20130627
  Serious: Yes (Hospitalization)
  Sender: FDA-Public Use
  Company Number: US-PFIZER INC-2012221438

PATIENT
  Age: 72 Year
  Sex: Female

DRUGS (3)
  1. SUTENT [Suspect]
     Indication: RENAL CANCER
     Dosage: UNK
  2. SUTENT [Suspect]
     Dosage: 50 mg, daily
  3. WARFARIN [Concomitant]
     Dosage: UNK

REACTIONS (1)
  - Sepsis [Unknown]
